FAERS Safety Report 6178037-4 (Version None)
Quarter: 2009Q2

REPORT INFORMATION
  Report Type: 
  Country: None (occurrence: None)
  Receive Date: 20090504
  Receipt Date: 20090423
  Transmission Date: 20091009
  Serious: Yes (Hospitalization)
  Sender: FDA-Public Use
  Company Number: ES-ELI_LILLY_AND_COMPANY-ES200904005891

PATIENT
  Age: 75 Year
  Sex: Female

DRUGS (9)
  1. FORTEO [Suspect]
     Indication: OSTEOPOROSIS
     Dosage: 20 UG, UNKNOWN
     Route: 058
     Dates: start: 20090301
  2. CALCIUM [Concomitant]
     Dosage: UNK, UNKNOWN
     Route: 065
  3. SUTRIL [Concomitant]
     Dosage: 5 MG, UNKNOWN
     Route: 065
  4. ADIRO [Concomitant]
     Dosage: UNK, UNKNOWN
     Route: 065
  5. DIAMICRON [Concomitant]
     Indication: DIABETES MELLITUS
     Dosage: UNK, UNKNOWN
     Route: 065
  6. ATENOLOL [Concomitant]
     Dosage: 50 MG, UNKNOWN
     Route: 065
  7. DIAZEPAN [Concomitant]
     Dosage: 125 MG, UNKNOWN
     Route: 065
  8. OMEPRAZOL [Concomitant]
     Indication: PROPHYLAXIS
     Dosage: UNK, UNKNOWN
     Route: 065
  9. RIVOTRIL [Concomitant]
     Indication: DEPRESSION
     Dosage: UNK, UNKNOWN
     Route: 065

REACTIONS (2)
  - FALL [None]
  - PAIN IN EXTREMITY [None]
